FAERS Safety Report 21083040 (Version 2)
Quarter: 2022Q3

REPORT INFORMATION
  Report Type: Spontaneous
  Country: US (occurrence: US)
  Receive Date: 20220714
  Receipt Date: 20220718
  Transmission Date: 20221027
  Serious: No
  Sender: FDA-Public Use
  Company Number: US-NOVARTISTESTPH-NVSC2022US159262

PATIENT
  Sex: Female

DRUGS (1)
  1. XIIDRA [Suspect]
     Active Substance: LIFITEGRAST
     Indication: Dry eye
     Dosage: 00.2 MG, BID (ONE DROP IN EACH EYE)
     Route: 047
     Dates: start: 20220712, end: 20220712

REACTIONS (2)
  - Periorbital swelling [Unknown]
  - Lacrimation increased [Unknown]
